FAERS Safety Report 7063264-4 (Version None)
Quarter: 2010Q4

REPORT INFORMATION
  Report Type: 
  Country: None (occurrence: None)
  Receive Date: 20101026
  Receipt Date: 20100707
  Transmission Date: 20110411
  Serious: No
  Sender: FDA-Public Use
  Company Number: US-PFIZER INC-2010085521

PATIENT
  Sex: Female
  Weight: 72.562 kg

DRUGS (5)
  1. LIPITOR [Suspect]
     Indication: BLOOD CHOLESTEROL INCREASED
     Dosage: 10 MG, 1X/DAY
     Route: 048
     Dates: start: 20100601, end: 20100601
  2. LIPITOR [Suspect]
     Indication: BLOOD TRIGLYCERIDES INCREASED
  3. CYMBALTA [Concomitant]
     Dosage: UNK
  4. LUVOX [Concomitant]
     Dosage: UNK
  5. ALPRAZOLAM [Concomitant]
     Dosage: UNK

REACTIONS (4)
  - BURNING SENSATION [None]
  - CONSTIPATION [None]
  - MYALGIA [None]
  - NAUSEA [None]
